FAERS Safety Report 9409703 (Version 2)
Quarter: 2013Q4

REPORT INFORMATION
  Report Type: Spontaneous
  Country: JP (occurrence: JP)
  Receive Date: 20130719
  Receipt Date: 20131028
  Transmission Date: 20140711
  Serious: Yes (Death, Other)
  Sender: FDA-Public Use
  Company Number: PHHY2013JP076082

PATIENT
  Age: 57 Year
  Sex: Male

DRUGS (3)
  1. GLIVEC [Suspect]
     Indication: CHRONIC MYELOID LEUKAEMIA TRANSFORMATION
     Dosage: 400 MG
  2. GLIVEC [Suspect]
     Dosage: 300 MG
  3. CHEMOTHERAPEUTICS [Concomitant]

REACTIONS (3)
  - Hepatocellular carcinoma [Fatal]
  - Second primary malignancy [Fatal]
  - Chronic hepatitis C [Unknown]
